FAERS Safety Report 24637017 (Version 1)
Quarter: 2024Q4

REPORT INFORMATION
  Report Type: Spontaneous
  Country: MX (occurrence: MX)
  Receive Date: 20241119
  Receipt Date: 20241119
  Transmission Date: 20250114
  Serious: Yes (Death, Other)
  Sender: NOVARTIS
  Company Number: MX-002147023-NVSC2024MX221781

PATIENT
  Age: 62 Year
  Sex: Female

DRUGS (1)
  1. GLIVEC [Suspect]
     Active Substance: IMATINIB MESYLATE
     Indication: Chronic myeloid leukaemia
     Dosage: 800 MG (8 X 100 MG)
     Route: 065

REACTIONS (6)
  - Death [Fatal]
  - Cardiac failure [Unknown]
  - Illness [Unknown]
  - Cardiomegaly [Unknown]
  - Blood glucose increased [Unknown]
  - Blood pressure decreased [Unknown]

NARRATIVE: CASE EVENT DATE: 20240629
